FAERS Safety Report 5974123-X (Version None)
Quarter: 2008Q4

REPORT INFORMATION
  Report Type: 
  Country: None (occurrence: None)
  Receive Date: 20081201
  Receipt Date: 20081126
  Transmission Date: 20090506
  Serious: Yes (Other)
  Sender: FDA-Public Use
  Company Number: US-PFIZER INC-2008074477

PATIENT
  Sex: Female

DRUGS (3)
  1. CELEBREX [Suspect]
     Dates: start: 20080715, end: 20080725
  2. VICODIN [Concomitant]
     Dates: end: 20080101
  3. ASPIRIN [Concomitant]
     Dates: end: 20080725

REACTIONS (1)
  - POST PROCEDURAL HAEMORRHAGE [None]
